FAERS Safety Report 24923661 (Version 1)
Quarter: 2025Q1

REPORT INFORMATION
  Report Type: Spontaneous
  Country: US (occurrence: US)
  Receive Date: 20250204
  Receipt Date: 20250204
  Transmission Date: 20250409
  Serious: Yes (Other)
  Sender: ALEMBIC
  Company Number: US-ALEMBIC PHARMACUETICALS LIMITED-2025SCAL000063

PATIENT

DRUGS (1)
  1. ERLOTINIB [Suspect]
     Active Substance: ERLOTINIB
     Indication: Lung adenocarcinoma
     Route: 048

REACTIONS (14)
  - Scleroderma-like reaction [Unknown]
  - Perioral dermatitis [Recovering/Resolving]
  - Rash [Recovering/Resolving]
  - Rash erythematous [Recovering/Resolving]
  - Muscle tightness [Unknown]
  - Mastication disorder [Unknown]
  - Wound [Recovering/Resolving]
  - Hyperkeratosis [Unknown]
  - Scar [Unknown]
  - Rash pustular [Unknown]
  - Dry skin [Unknown]
  - Skin toxicity [Unknown]
  - Scab [Unknown]
  - Therapy partial responder [Unknown]
